FAERS Safety Report 7553425-X (Version None)
Quarter: 2011Q2

REPORT INFORMATION
  Report Type: 
  Country: None (occurrence: None)
  Receive Date: 20110617
  Receipt Date: 20110418
  Transmission Date: 20111010
  Serious: No
  Sender: FDA-Public Use
  Company Number: US-MYLANLABS-2011S1003744

PATIENT
  Age: 61 Year
  Sex: Female

DRUGS (4)
  1. TOPIRAMATE [Suspect]
     Indication: MIGRAINE
     Route: 048
     Dates: start: 20101201
  2. ZYRTEC [Concomitant]
     Indication: MULTIPLE ALLERGIES
     Route: 048
  3. TOPIRAMATE [Suspect]
     Indication: CLUSTER HEADACHE
     Route: 048
     Dates: start: 20101201
  4. SINGULAIR [Concomitant]
     Indication: MULTIPLE ALLERGIES
     Route: 048

REACTIONS (4)
  - RENAL IMPAIRMENT [None]
  - PARAESTHESIA [None]
  - CONFUSIONAL STATE [None]
  - ASTHENIA [None]
